FAERS Safety Report 4794403-3 (Version None)
Quarter: 2005Q4

REPORT INFORMATION
  Report Type: 
  Country: None (occurrence: None)
  Receive Date: 20051011
  Receipt Date: 20051004
  Transmission Date: 20060501
  Serious: Yes (Other)
  Sender: FDA-Public Use
  Company Number: 200517054US

PATIENT
  Age: 64 Year
  Sex: Male

DRUGS (5)
  1. LOVENOX [Suspect]
     Indication: PROPHYLAXIS
     Dosage: DOSE: UNKNOWN
     Route: 051
     Dates: end: 20051004
  2. LOVENOX [Suspect]
     Indication: STENT PLACEMENT
     Dosage: DOSE: UNKNOWN
     Route: 051
     Dates: end: 20051004
  3. LASIX [Concomitant]
     Dosage: DOSE: UNKNOWN
  4. MEPERIDINE HCL [Concomitant]
     Dosage: DOSE: UNKNOWN
  5. CARTIA XT [Concomitant]
     Dosage: DOSE: UNKNOWN

REACTIONS (8)
  - BLOOD BILIRUBIN INCREASED [None]
  - BLOOD CREATININE INCREASED [None]
  - BLOOD LACTATE DEHYDROGENASE INCREASED [None]
  - BLOOD URINE PRESENT [None]
  - CATHETER SITE HAEMORRHAGE [None]
  - HAEMOLYTIC ANAEMIA [None]
  - HAPTOGLOBIN DECREASED [None]
  - RENAL FAILURE ACUTE [None]
